FAERS Safety Report 16554089 (Version 1)
Quarter: 2019Q3

REPORT INFORMATION
  Report Type: Spontaneous
  Country: US (occurrence: US)
  Receive Date: 20190710
  Receipt Date: 20190710
  Transmission Date: 20191004
  Serious: Yes (Other)
  Sender: FDA-Public Use
  Company Number: US-FRESENIUS KABI-FK201907525

PATIENT
  Age: 19 Year
  Sex: Female

DRUGS (4)
  1. HALOPERIDOL INJECTION (MANUFACTURER UNKNOWN) [Suspect]
     Active Substance: HALOPERIDOL LACTATE
     Dosage: 2,5 MG
     Route: 030
  2. HALOPERIDOL INJECTION (MANUFACTURER UNKNOWN) [Suspect]
     Active Substance: HALOPERIDOL LACTATE
     Indication: AGITATION
     Dosage: 2,5 MG
     Route: 030
  3. HALOPERIDOL INJECTION (MANUFACTURER UNKNOWN) [Suspect]
     Active Substance: HALOPERIDOL LACTATE
     Dosage: 2,5 MG
     Route: 030
  4. PALIPERIDONE. [Suspect]
     Active Substance: PALIPERIDONE
     Indication: AGITATION
     Route: 048

REACTIONS (2)
  - Catatonia [Recovered/Resolved]
  - Product use in unapproved indication [Recovered/Resolved]
